FAERS Safety Report 5261006-6 (Version None)
Quarter: 2007Q1

REPORT INFORMATION
  Report Type: 
  Country: None (occurrence: None)
  Receive Date: 20070306
  Receipt Date: 20070221
  Transmission Date: 20070707
  Serious: Yes (Death)
  Sender: FDA-Public Use
  Company Number: 2007RR-05970

PATIENT
  Age: 71 Year
  Sex: Male

DRUGS (2)
  1. IBUPROFEN [Suspect]
     Indication: ARTHRALGIA
     Dosage: 600 MG, QD
  2. GINKGO BILOBA(GINKGO BILOBA) [Suspect]
     Dosage: 40 MG, BID

REACTIONS (2)
  - CEREBRAL HAEMORRHAGE [None]
  - COMA [None]
